FAERS Safety Report 19066087 (Version 2)
Quarter: 2021Q3

REPORT INFORMATION
  Report Type: Spontaneous
  Country: DE (occurrence: DE)
  Receive Date: 20210327
  Receipt Date: 20210708
  Transmission Date: 20211014
  Serious: Yes (Other)
  Sender: FDA-Public Use
  Company Number: DE-ORGANON-O2103DEU002471

PATIENT
  Age: 77 Year
  Sex: Female

DRUGS (9)
  1. EFEROX [Suspect]
     Active Substance: LEVOTHYROXINE SODIUM
     Indication: HYPOTHYROIDISM
     Dosage: 1?0?0
     Route: 048
  2. METOPROLOL. [Suspect]
     Active Substance: METOPROLOL
     Indication: BLOOD PRESSURE INCREASED
     Dosage: 1/2?0?1/2
     Route: 048
  3. VITAMIN B KOMPLEX [BIOTIN;CALCIUM PANTOTHENATE;FOLIC ACID;NICOTINAMIDE [Suspect]
     Active Substance: VITAMINS
     Dosage: REPORTED AS VITAMIN B COMPLEX RATIOPHARM
  4. RAMIPRIL. [Suspect]
     Active Substance: RAMIPRIL
     Indication: BLOOD PRESSURE INCREASED
     Dosage: 0?0?1
     Route: 048
  5. KNOBLAUCH MISTEL WEISSDORN [Suspect]
     Active Substance: HERBALS
     Dosage: UNK
     Route: 048
  6. INEGY 10 MG/40 MG TABLETTEN [Suspect]
     Active Substance: EZETIMIBE\SIMVASTATIN
     Indication: LIPID METABOLISM DISORDER
     Dosage: 0?0?1
     Route: 048
  7. ASPIRIN. [Suspect]
     Active Substance: ASPIRIN
     Dosage: 0?1?0, ONGOING
     Route: 048
  8. GINKOBIL [Suspect]
     Active Substance: GINKGO
     Dosage: 1?0?1
     Route: 048
  9. COLECALCIFEROL [Suspect]
     Active Substance: CHOLECALCIFEROL
     Dosage: 14?DAYS 1

REACTIONS (1)
  - Polyneuropathy [Not Recovered/Not Resolved]
